FAERS Safety Report 6615418-6 (Version None)
Quarter: 2010Q1

REPORT INFORMATION
  Report Type: 
  Country: None (occurrence: None)
  Receive Date: 20100305
  Receipt Date: 20091117
  Transmission Date: 20100710
  Serious: No
  Sender: FDA-Public Use
  Company Number: A0817468A

PATIENT
  Age: 67 Year
  Sex: Male

DRUGS (11)
  1. ROPINIROLE [Suspect]
     Indication: RESTLESS LEGS SYNDROME
     Route: 048
     Dates: start: 20070101, end: 20091115
  2. FLOMAX [Concomitant]
  3. AVODART [Concomitant]
  4. PLAQUENIL [Concomitant]
  5. ALLOPURINOL [Concomitant]
  6. SYNTHROID [Concomitant]
  7. LASIX [Concomitant]
  8. SINEMET [Concomitant]
  9. KLONOPIN [Concomitant]
  10. FISH OIL [Concomitant]
  11. ASPIRIN [Concomitant]

REACTIONS (1)
  - THERAPEUTIC RESPONSE UNEXPECTED [None]
